FAERS Safety Report 10265491 (Version 1)
Quarter: 2014Q2

REPORT INFORMATION
  Report Type: Spontaneous
  Country: BR (occurrence: BR)
  Receive Date: 20140627
  Receipt Date: 20140627
  Transmission Date: 20141212
  Serious: Yes (Hospitalization)
  Sender: FDA-Public Use
  Company Number: BR-009507513-1406BRA012770

PATIENT
  Sex: Female
  Weight: 60 kg

DRUGS (2)
  1. FOSAMAX [Suspect]
     Indication: OSTEOPOROSIS
     Dosage: 70 MG, QW
     Route: 048
     Dates: start: 2000, end: 201401
  2. CALCIUM (UNSPECIFIED) [Concomitant]
     Indication: OSTEOPOROSIS
     Dosage: 1 DF, BID
     Dates: start: 2000

REACTIONS (5)
  - Phlebectomy [Recovered/Resolved]
  - Varicose vein [Unknown]
  - Onychomycosis [Recovered/Resolved]
  - Onychomycosis [Not Recovered/Not Resolved]
  - Rhinitis [Not Recovered/Not Resolved]
